FAERS Safety Report 19122780 (Version 1)
Quarter: 2021Q2

REPORT INFORMATION
  Report Type: Spontaneous
  Country: US (occurrence: US)
  Receive Date: 20210412
  Receipt Date: 20210412
  Transmission Date: 20210717
  Serious: No
  Sender: FDA-Public Use
  Company Number: US-CORCEPT THERAPEUTICS INC.-US-2020CRT000515

PATIENT
  Age: 73 Year
  Sex: Female

DRUGS (3)
  1. KORLYM [Suspect]
     Active Substance: MIFEPRISTONE
     Dosage: 300 MG, QOD
     Route: 048
     Dates: start: 20200420, end: 202005
  2. KORLYM [Suspect]
     Active Substance: MIFEPRISTONE
     Indication: CUSHING^S SYNDROME
     Dosage: 300 MG, QD
     Route: 048
     Dates: start: 20200406, end: 202004
  3. KORLYM [Suspect]
     Active Substance: MIFEPRISTONE
     Dosage: 300 MG, QOD
     Route: 048
     Dates: start: 20200510, end: 20200526

REACTIONS (18)
  - Blood pressure fluctuation [Not Recovered/Not Resolved]
  - Heart rate decreased [Recovering/Resolving]
  - Muscle spasms [Recovered/Resolved]
  - Palpitations [Recovered/Resolved]
  - Peripheral swelling [Unknown]
  - Renal impairment [Unknown]
  - Arthralgia [Recovering/Resolving]
  - Oedema [Unknown]
  - Blood glucose increased [Unknown]
  - Dyspnoea [Recovering/Resolving]
  - Headache [Recovered/Resolved]
  - Abdominal pain upper [Unknown]
  - Dizziness [Unknown]
  - Hot flush [Recovered/Resolved]
  - Abdominal distension [Unknown]
  - Fatigue [Unknown]
  - Inappropriate schedule of product administration [Not Recovered/Not Resolved]
  - Choking [Unknown]

NARRATIVE: CASE EVENT DATE: 202004
